FAERS Safety Report 4751325-1 (Version None)
Quarter: 2005Q3

REPORT INFORMATION
  Report Type: 
  Country: None (occurrence: None)
  Receive Date: 20050824
  Receipt Date: 20050514
  Transmission Date: 20060218
  Serious: Yes (Life-Threatening, Hospitalization, Disabling)
  Sender: FDA-Public Use
  Company Number: FR-AMGEN-UK133370

PATIENT
  Sex: Male
  Weight: 63 kg

DRUGS (7)
  1. ARANESP [Suspect]
     Indication: RENAL TRANSPLANT
     Route: 058
     Dates: start: 20050316, end: 20050407
  2. CELLCEPT [Concomitant]
     Route: 065
  3. LASIX [Concomitant]
     Route: 065
  4. RAPAMUNE [Concomitant]
     Route: 065
  5. ATENOLOL [Concomitant]
     Route: 065
  6. LOXEN [Concomitant]
     Route: 065
  7. PROZAC [Concomitant]
     Route: 065

REACTIONS (7)
  - APHASIA [None]
  - ARTERIAL DISORDER [None]
  - CAROTID ARTERY STENOSIS [None]
  - FACIAL PALSY [None]
  - FACIAL PARESIS [None]
  - HEMIPARESIS [None]
  - ULTRASOUND DOPPLER ABNORMAL [None]
